FAERS Safety Report 13609421 (Version 2)
Quarter: 2017Q2

REPORT INFORMATION
  Report Type: Spontaneous
  Country: US (occurrence: US)
  Receive Date: 20170602
  Receipt Date: 20170605
  Transmission Date: 20170830
  Serious: No
  Sender: FDA-Public Use
  Company Number: US-PFIZER INC-2882828

PATIENT
  Age: 68 Year
  Sex: Male
  Weight: 61.24 kg

DRUGS (3)
  1. SODIUM PHOSPHATE /00483901/ [Concomitant]
     Indication: PRODUCT USED FOR UNKNOWN INDICATION
     Dosage: UNK
     Dates: start: 20150101
  2. KETOROLAC TROMETHAMINE. [Suspect]
     Active Substance: KETOROLAC TROMETHAMINE
     Indication: PLANTAR FASCIITIS
     Dosage: TWICE PER INSURANCE, INJECTED INTO RIGHT HEEL OF FOOT
     Route: 050
     Dates: start: 20150101
  3. BETAMETHASONE. [Concomitant]
     Active Substance: BETAMETHASONE
     Indication: PRODUCT USED FOR UNKNOWN INDICATION
     Dosage: UNK
     Dates: start: 20150101

REACTIONS (7)
  - Skin discolouration [Recovering/Resolving]
  - Muscle mass [Recovering/Resolving]
  - Poor quality drug administered [Recovering/Resolving]
  - Musculoskeletal stiffness [Recovering/Resolving]
  - Product deposit [Recovering/Resolving]
  - Inflammation [Recovering/Resolving]
  - Muscle strain [Recovering/Resolving]

NARRATIVE: CASE EVENT DATE: 20150101
